FAERS Safety Report 9656696 (Version 1)
Quarter: 2013Q4

REPORT INFORMATION
  Report Type: Spontaneous
  Country: US (occurrence: None)
  Receive Date: 20131029
  Receipt Date: 20131029
  Transmission Date: 20140711
  Serious: Yes (Hospitalization)
  Sender: FDA-Public Use
  Company Number: None

PATIENT
  Age: 32 Year
  Sex: Female
  Weight: 101 kg

DRUGS (3)
  1. VICTOZA [Suspect]
     Indication: DIABETES MELLITUS
     Dosage: 1.8 MG DAILY SUBCUTANEOUSLY
     Route: 058
     Dates: start: 20130815, end: 20130930
  2. LANTUS [Concomitant]
  3. SPRINTEC [Concomitant]

REACTIONS (1)
  - Pancreatitis [None]
